FAERS Safety Report 5306469-2 (Version None)
Quarter: 2007Q2

REPORT INFORMATION
  Report Type: 
  Country: None (occurrence: None)
  Receive Date: 20070417
  Receipt Date: 20070406
  Transmission Date: 20071010
  Serious: Yes (Other)
  Sender: FDA-Public Use
  Company Number: 805#8#2007-00047

PATIENT
  Age: 2 Month
  Sex: Male

DRUGS (1)
  1. ALPROSTADIL [Suspect]
     Indication: HEART DISEASE CONGENITAL
     Dosage: SEE IMAGE
     Route: 041

REACTIONS (3)
  - BONE DISORDER [None]
  - GENERALISED OEDEMA [None]
  - PYREXIA [None]
